FAERS Safety Report 22170779 (Version 1)
Quarter: 2023Q2

REPORT INFORMATION
  Report Type: Spontaneous
  Country: US (occurrence: None)
  Receive Date: 20230404
  Receipt Date: 20230404
  Transmission Date: 20230721
  Serious: Yes (Other)
  Sender: FDA-Public Use
  Company Number: US-ROCHE-3324518

PATIENT
  Age: 80 Year
  Sex: Female
  Weight: 40.860 kg

DRUGS (3)
  1. VABYSMO [Suspect]
     Active Substance: FARICIMAB-SVOA
     Indication: Neovascular age-related macular degeneration
     Route: 065
  2. VABYSMO [Suspect]
     Active Substance: FARICIMAB-SVOA
     Indication: Eye disorder
  3. AVASTIN [Suspect]
     Active Substance: BEVACIZUMAB
     Indication: Neovascular age-related macular degeneration
     Route: 065

REACTIONS (6)
  - Eye inflammation [Unknown]
  - Corneal oedema [Recovered/Resolved]
  - Intraocular pressure increased [Unknown]
  - Vitritis [Unknown]
  - Vitreous haze [Unknown]
  - Off label use [Unknown]
